FAERS Safety Report 21072811 (Version 2)
Quarter: 2022Q3

REPORT INFORMATION
  Report Type: Spontaneous
  Country: US (occurrence: US)
  Receive Date: 20220712
  Receipt Date: 20220727
  Transmission Date: 20221026
  Serious: Yes (Congenital Anomaly, Other)
  Sender: FDA-Public Use
  Company Number: US-BIOMARINAP-US-2022-143424

PATIENT

DRUGS (1)
  1. VOXZOGO [Suspect]
     Active Substance: VOSORITIDE
     Indication: Product used for unknown indication
     Route: 065

REACTIONS (3)
  - Spinal cord compression [Recovering/Resolving]
  - Kyphosis [Recovering/Resolving]
  - Arthropathy [Recovering/Resolving]
